FAERS Safety Report 18071579 (Version 5)
Quarter: 2021Q1

REPORT INFORMATION
  Report Type: Spontaneous
  Country: US (occurrence: US)
  Receive Date: 20200727
  Receipt Date: 20210112
  Transmission Date: 20210419
  Serious: No
  Sender: FDA-Public Use
  Company Number: US-BIOGEN-2020BI00900902

PATIENT
  Age: 59 Year
  Sex: Male

DRUGS (2)
  1. TYSABRI [Suspect]
     Active Substance: NATALIZUMAB
     Indication: MULTIPLE SCLEROSIS
     Route: 065
     Dates: start: 20080624, end: 20101103
  2. TYSABRI [Suspect]
     Active Substance: NATALIZUMAB
     Route: 065
     Dates: start: 20161109

REACTIONS (12)
  - Blood alkaline phosphatase increased [Unknown]
  - Gastrointestinal infection [Unknown]
  - Blood creatinine decreased [Unknown]
  - Aspartate aminotransferase increased [Unknown]
  - Vitamin B12 increased [Unknown]
  - Lymphocyte count increased [Unknown]
  - Multiple sclerosis [Unknown]
  - Red blood cell count decreased [Unknown]
  - Alanine aminotransferase increased [Unknown]
  - Vitamin D decreased [Unknown]
  - Blood potassium decreased [Not Recovered/Not Resolved]
  - CD4 lymphocytes increased [Unknown]

NARRATIVE: CASE EVENT DATE: 20190530
